FAERS Safety Report 9517087 (Version 2)
Quarter: 2013Q3

REPORT INFORMATION
  Report Type: Report from Study
  Country: JP (occurrence: JP)
  Receive Date: 20130911
  Receipt Date: 20130911
  Transmission Date: 20140515
  Serious: Yes (Hospitalization)
  Sender: FDA-Public Use
  Company Number: JP-ABBOTT-13P-087-1131579-00

PATIENT
  Age: 46 Year
  Sex: Female
  Weight: 53 kg

DRUGS (9)
  1. HUMIRA [Suspect]
     Indication: BEHCET^S SYNDROME
     Route: 058
     Dates: start: 20130730, end: 20130730
  2. PREDNISOLONE [Concomitant]
     Indication: BEHCET^S SYNDROME
     Route: 048
     Dates: start: 20121210
  3. PREDNISOLONE [Concomitant]
     Dates: start: 20130212
  4. PREDNISOLONE [Concomitant]
     Dates: start: 2013
  5. PREDNISOLONE [Concomitant]
     Dates: start: 20130618
  6. PREDNISOLONE [Concomitant]
     Dates: start: 20130809
  7. PREDNISOLONE [Concomitant]
     Dates: start: 20130813
  8. CICLOSPORIN [Concomitant]
     Indication: BEHCET^S SYNDROME
     Route: 048
     Dates: start: 20121214
  9. MESALAZINE [Concomitant]
     Indication: BEHCET^S SYNDROME
     Route: 048
     Dates: start: 20121120

REACTIONS (6)
  - Behcet^s syndrome [Unknown]
  - Pyrexia [Recovering/Resolving]
  - Clostridium test positive [Unknown]
  - Staphylococcal infection [Unknown]
  - Neutropenia [Unknown]
  - Platelet count decreased [Unknown]
